FAERS Safety Report 9054237 (Version 4)
Quarter: 2013Q1

REPORT INFORMATION
  Report Type: Spontaneous
  Country: US (occurrence: US)
  Receive Date: 20130208
  Receipt Date: 20130325
  Transmission Date: 20140127
  Serious: Yes (Hospitalization)
  Sender: FDA-Public Use
  Company Number: US-GLAXOSMITHKLINE-A0898986A

PATIENT
  Age: 71 Year
  Sex: Male
  Weight: 109.1 kg

DRUGS (12)
  1. AVANDIA [Suspect]
     Indication: TYPE 2 DIABETES MELLITUS
     Dosage: 4MG PER DAY
     Route: 048
     Dates: start: 2001
  2. ACTOS [Concomitant]
  3. KLOR CON [Concomitant]
  4. COREG [Concomitant]
  5. ALLOPURINOL [Concomitant]
  6. LASIX [Concomitant]
  7. AMARYL [Concomitant]
  8. AMIODARONE [Concomitant]
  9. LIPITOR [Concomitant]
  10. PLAVIX [Concomitant]
  11. HUMULIN [Concomitant]
  12. ASA [Concomitant]

REACTIONS (3)
  - Acute myocardial infarction [Not Recovered/Not Resolved]
  - Atrial fibrillation [Unknown]
  - Cardiac failure congestive [Unknown]
